FAERS Safety Report 15824514 (Version 2)
Quarter: 2019Q1

REPORT INFORMATION
  Report Type: Spontaneous
  Country: JP (occurrence: JP)
  Receive Date: 20190115
  Receipt Date: 20190325
  Transmission Date: 20190417
  Serious: Yes (Death, Other)
  Sender: FDA-Public Use
  Company Number: JP-ASTELLAS-2019JP000165

PATIENT
  Age: 68 Year
  Sex: Female

DRUGS (5)
  1. PREDNISOLONE. [Concomitant]
     Active Substance: PREDNISOLONE
     Indication: DIFFUSE LARGE B-CELL LYMPHOMA
     Dosage: 20 MG/DAY, UNKNOWN FREQ.
     Route: 065
     Dates: start: 201603, end: 201605
  2. PROGRAF [Suspect]
     Active Substance: TACROLIMUS\TACROLIMUS ANHYDROUS
     Indication: SYSTEMIC LUPUS ERYTHEMATOSUS
     Dosage: 3 MG/DAY, UNKNOWN FREQ.
     Route: 065
     Dates: end: 201603
  3. PREDNISOLONE. [Concomitant]
     Active Substance: PREDNISOLONE
     Indication: SYSTEMIC LUPUS ERYTHEMATOSUS
     Dosage: 12 MG/DAY, UNKNOWN FREQ.
     Route: 065
     Dates: end: 201603
  4. PREDNISOLONE. [Concomitant]
     Active Substance: PREDNISOLONE
     Dosage: 18 MG/DAY, UNKNOWN FREQ.
     Route: 065
     Dates: start: 201605, end: 201605
  5. PREDNISOLONE. [Concomitant]
     Active Substance: PREDNISOLONE
     Dosage: 16 MG/DAY, UNKNOWN FREQ.
     Route: 065
     Dates: start: 201605

REACTIONS (4)
  - Diffuse large B-cell lymphoma [Fatal]
  - Varicella zoster virus infection [Unknown]
  - Off label use [Unknown]
  - Necrotising retinitis [Recovering/Resolving]

NARRATIVE: CASE EVENT DATE: 201602
